FAERS Safety Report 17585928 (Version 1)
Quarter: 2020Q1

REPORT INFORMATION
  Report Type: Spontaneous
  Country: US (occurrence: US)
  Receive Date: 20200326
  Receipt Date: 20200326
  Transmission Date: 20200409
  Serious: No
  Sender: FDA-Public Use
  Company Number: None

PATIENT
  Age: 60 Year
  Sex: Female
  Weight: 136 kg

DRUGS (13)
  1. PROCHLORPERAZINE 10 MG ORAL [Concomitant]
  2. VITAMIN D3 1000U, ORAL [Concomitant]
  3. SENNA 8.6 MG, ORAL [Concomitant]
  4. ONDANSETRON HCL 8MG, ORAL [Concomitant]
  5. CITALOPRAM 10 MG, ORAL [Concomitant]
  6. CALCIUM CARBONATE 260 MG, ORAL [Concomitant]
  7. NERLYNX 40 MG, ORAL [Concomitant]
     Dates: start: 20190409, end: 20190412
  8. ACETAMINOPHEN 325MG, ORAL [Concomitant]
  9. TYKERB [Suspect]
     Active Substance: LAPATINIB DITOSYLATE
     Indication: BREAST CANCER
     Route: 048
     Dates: start: 20200225, end: 20200326
  10. TEMAZEPAM 15 MG ORAL [Concomitant]
  11. CAPECITABINE. [Suspect]
     Active Substance: CAPECITABINE
     Indication: BREAST CANCER
     Route: 048
     Dates: start: 20200225, end: 20200326
  12. VITAMIN B COMPLEX ORAL [Concomitant]
  13. TAMOXIFEN 20 MG  ORAL [Concomitant]

REACTIONS (1)
  - Disease progression [None]

NARRATIVE: CASE EVENT DATE: 20200326
